FAERS Safety Report 24013147 (Version 2)
Quarter: 2024Q3

REPORT INFORMATION
  Report Type: Spontaneous
  Country: CH (occurrence: CH)
  Receive Date: 20240626
  Receipt Date: 20240801
  Transmission Date: 20241017
  Serious: Yes (Hospitalization, Other)
  Sender: ABBVIE
  Company Number: None

PATIENT
  Age: 38 Year
  Sex: Female
  Weight: 48 kg

DRUGS (20)
  1. CARIPRAZINE [Suspect]
     Active Substance: CARIPRAZINE
     Indication: Behaviour disorder
     Dosage: 3 MILLIGRAM, QD
     Route: 065
     Dates: start: 20240318
  2. CARIPRAZINE [Suspect]
     Active Substance: CARIPRAZINE
     Indication: Behaviour disorder
     Dosage: 1.5 MILLIGRAM, QD
     Route: 065
     Dates: start: 20240313, end: 20240318
  3. VALIUM [Suspect]
     Active Substance: DIAZEPAM
     Indication: Anxiety
     Dosage: 45 MILLIGRAM, QD, DOSE FORM- AMP IM
     Route: 065
     Dates: start: 20240301
  4. VALIUM [Suspect]
     Active Substance: DIAZEPAM
     Indication: Anxiety
     Dosage: 30 MILLIGRAM, QD, DOSE FORM- AMP IM
     Route: 065
     Dates: start: 202312, end: 20240301
  5. MOVICOL [Concomitant]
     Active Substance: POLYETHYLENE GLYCOL 3350\POTASSIUM CHLORIDE\SODIUM BICARBONATE\SODIUM CHLORIDE
     Indication: Constipation
     Dosage: 2 DOSAGE FORM, QD, DOSE FORM- AMP IM
     Route: 065
  6. MELATONIN [Concomitant]
     Active Substance: MELATONIN
     Indication: Sleep disorder
     Dosage: 4 MILLIGRAM, QD, LAST ADMINISTRATION DATE- APR 2024, DOSE FORM- AMP IM
     Route: 065
     Dates: start: 20240412
  7. MELATONIN [Concomitant]
     Active Substance: MELATONIN
     Indication: Sleep disorder
     Dosage: 3 MILLIGRAM, QD, DOSE FORM- AMP IM
     Route: 065
     Dates: start: 20240412
  8. NEXIUM [Concomitant]
     Active Substance: ESOMEPRAZOLE MAGNESIUM
     Indication: Product used for unknown indication
     Dosage: 40 MILLIGRAM, QD, FORM- AMP IM
     Route: 065
     Dates: start: 2021
  9. MIRTAZAPINE [Concomitant]
     Active Substance: MIRTAZAPINE
     Indication: Depressive symptom
     Dosage: 15 MILLIGRAM, QD, DOSE FORM- AMP IM
     Route: 065
     Dates: start: 20240416
  10. TRAMADOL [Concomitant]
     Active Substance: TRAMADOL\TRAMADOL HYDROCHLORIDE
     Indication: Pain
     Dosage: 25 MILLIGRAM, QD, DOSE FORM- AMP IM
     Route: 065
     Dates: start: 20240308
  11. TRAMADOL [Concomitant]
     Active Substance: TRAMADOL\TRAMADOL HYDROCHLORIDE
     Indication: Pain
     Dosage: 50 MILLIGRAM, QD, DOSE FORM- AMP IM
     Route: 065
     Dates: start: 20240310
  12. TRAMADOL [Concomitant]
     Active Substance: TRAMADOL\TRAMADOL HYDROCHLORIDE
     Indication: Pain
     Dosage: 75 MILLIGRAM, QD, DOSE FORM- AMP IM
     Route: 065
     Dates: start: 20240314
  13. TRAMADOL [Concomitant]
     Active Substance: TRAMADOL\TRAMADOL HYDROCHLORIDE
     Indication: Pain
     Dosage: 37.5 MILLIGRAM, QD, DOSE FORM- AMP IM
     Route: 065
     Dates: start: 20240322, end: 20240410
  14. LEVOMEPROMAZINE [Suspect]
     Active Substance: LEVOMEPROMAZINE
     Indication: Behaviour disorder
     Dosage: 150 MILLIGRAM, QD, DOSE FORM- AMP IM
     Route: 065
     Dates: start: 202402
  15. DAFALGAN [Concomitant]
     Active Substance: ACETAMINOPHEN
     Indication: Product used for unknown indication
     Dosage: 3 GRAM, QD, DOSE FORM- AMP IM
     Route: 065
     Dates: start: 20240306
  16. DAFALGAN [Concomitant]
     Active Substance: ACETAMINOPHEN
     Indication: Product used for unknown indication
     Dosage: 500 MILLIGRAM, TID, DOSE FORM- AMP IM
     Route: 065
     Dates: start: 20240411, end: 20240415
  17. VALPROATE SODIUM [Concomitant]
     Active Substance: VALPROATE SODIUM
     Indication: Behaviour disorder
     Dosage: 1000 MILLIGRAM, QD, DOSE FORM- AMP IM
     Route: 065
     Dates: start: 20240320
  18. VALPROATE SODIUM [Concomitant]
     Active Substance: VALPROATE SODIUM
     Indication: Behaviour disorder
     Dosage: 750 MILLIGRAM, QD2, DOSE FORM- AMP IM
     Route: 065
     Dates: start: 20240319
  19. VALPROATE SODIUM [Concomitant]
     Active Substance: VALPROATE SODIUM
     Indication: Behaviour disorder
     Dosage: 800 MILLIGRAM, QD, DOSE FORM- AMP IM
     Route: 065
     Dates: start: 20240412
  20. VALPROATE SODIUM [Concomitant]
     Active Substance: VALPROATE SODIUM
     Indication: Behaviour disorder
     Dosage: 500 MILLIGRAM, QD, DOSE FORM- AMP IM
     Route: 065
     Dates: start: 20240316

REACTIONS (5)
  - Haematemesis [Recovered/Resolved]
  - Hypochromic anaemia [Unknown]
  - Oesophagitis [Recovered/Resolved]
  - Diarrhoea [Recovered/Resolved]
  - Product use in unapproved indication [Not Recovered/Not Resolved]

NARRATIVE: CASE EVENT DATE: 20240313
